FAERS Safety Report 15398295 (Version 1)
Quarter: 2018Q4

REPORT INFORMATION
  Report Type: Spontaneous
  Country: AU (occurrence: AU)
  Receive Date: 20180918
  Receipt Date: 20180918
  Transmission Date: 20190204
  Serious: Yes (Other)
  Sender: FDA-Public Use
  Company Number: AU-MYLANLABS-2018M1067874

PATIENT
  Age: 76 Year
  Sex: Female

DRUGS (1)
  1. D-PENAMINE [Suspect]
     Active Substance: PENICILLAMINE
     Indication: CYSTINURIA
     Dosage: 250 MG, QID

REACTIONS (1)
  - Aspergillus infection [Not Recovered/Not Resolved]
